FAERS Safety Report 7674889-7 (Version None)
Quarter: 2011Q3

REPORT INFORMATION
  Report Type: 
  Country: None (occurrence: None)
  Receive Date: 20110810
  Receipt Date: 20110728
  Transmission Date: 20111222
  Serious: Yes (Other)
  Sender: FDA-Public Use
  Company Number: US-ELI_LILLY_AND_COMPANY-US201108000998

PATIENT
  Age: 53 Year
  Sex: Female

DRUGS (1)
  1. CYMBALTA [Suspect]
     Indication: ANXIETY DISORDER

REACTIONS (5)
  - SUICIDAL IDEATION [None]
  - DRUG INEFFECTIVE [None]
  - RENAL DISORDER [None]
  - LIVER INJURY [None]
  - SUICIDE ATTEMPT [None]
